FAERS Safety Report 7659048-6 (Version None)
Quarter: 2011Q3

REPORT INFORMATION
  Report Type: 
  Country: None (occurrence: None)
  Receive Date: 20110805
  Receipt Date: 20110727
  Transmission Date: 20111222
  Serious: Yes (Hospitalization)
  Sender: FDA-Public Use
  Company Number: IN-ASTRAZENECA-2011SE46383

PATIENT
  Age: 67 Month
  Sex: Male
  Weight: 58 kg

DRUGS (2)
  1. BICALUTAMIDE [Suspect]
     Indication: TESTOTOXICOSIS
     Route: 048
     Dates: start: 20060327
  2. ANASTROZOLE [Suspect]
     Indication: TESTOTOXICOSIS
     Route: 048
     Dates: start: 20060327

REACTIONS (1)
  - GYNAECOMASTIA [None]
